FAERS Safety Report 24084572 (Version 1)
Quarter: 2024Q3

REPORT INFORMATION
  Report Type: Report from Study
  Country: FR (occurrence: FR)
  Receive Date: 20240712
  Receipt Date: 20240712
  Transmission Date: 20241017
  Serious: Yes (Other)
  Sender: PIERRE FABRE MEDICAMENT
  Company Number: FR-PFM-2022-00809

PATIENT

DRUGS (1)
  1. PROPRANOLOL HYDROCHLORIDE [Suspect]
     Active Substance: PROPRANOLOL HYDROCHLORIDE
     Indication: Infantile haemangioma
     Dosage: BETWEEN 2 AND 3 MG/KG/DAY
     Route: 065

REACTIONS (15)
  - Conductive deafness [Unknown]
  - Deafness bilateral [Unknown]
  - Rebound effect [Unknown]
  - Learning disorder [Unknown]
  - Hypotonia [Unknown]
  - Strabismus [Unknown]
  - Astigmatism [Unknown]
  - Hypermetropia [Unknown]
  - Dysarthria [Unknown]
  - Jaw disorder [Unknown]
  - Language disorder [Unknown]
  - Precocious puberty [Unknown]
  - Headache [Unknown]
  - Product use issue [Unknown]
  - Off label use [Unknown]
